FAERS Safety Report 5951439-4 (Version None)
Quarter: 2008Q4

REPORT INFORMATION
  Report Type: 
  Country: None (occurrence: None)
  Receive Date: 20081111
  Receipt Date: 20081111
  Transmission Date: 20090506
  Serious: No
  Sender: FDA-Public Use
  Company Number: None

PATIENT
  Age: 77 Year
  Sex: Male

DRUGS (1)
  1. HEPARIN [Suspect]
     Dates: start: 20080115, end: 20080115

REACTIONS (1)
  - HEPARIN-INDUCED THROMBOCYTOPENIA [None]
